FAERS Safety Report 26144438 (Version 1)
Quarter: 2025Q4

REPORT INFORMATION
  Report Type: Spontaneous
  Country: CN (occurrence: CN)
  Receive Date: 20251211
  Receipt Date: 20251211
  Transmission Date: 20260118
  Serious: Yes (Life-Threatening)
  Sender: BEIGENE
  Company Number: CN-BEONEMEDICINES-BGN-2025-022111

PATIENT
  Age: 70 Year
  Sex: Male
  Weight: 60 kg

DRUGS (4)
  1. TISLELIZUMAB [Suspect]
     Active Substance: TISLELIZUMAB
     Indication: Oesophageal carcinoma
     Dosage: 100 MILLIGRAM
     Dates: start: 20251203, end: 20251203
  2. TISLELIZUMAB [Suspect]
     Active Substance: TISLELIZUMAB
     Dosage: 100 MILLIGRAM
     Route: 041
     Dates: start: 20251203, end: 20251203
  3. TISLELIZUMAB [Suspect]
     Active Substance: TISLELIZUMAB
     Dosage: 100 MILLIGRAM
     Route: 041
     Dates: start: 20251203, end: 20251203
  4. TISLELIZUMAB [Suspect]
     Active Substance: TISLELIZUMAB
     Dosage: 100 MILLIGRAM
     Dates: start: 20251203, end: 20251203

REACTIONS (4)
  - Hyperhidrosis [Recovering/Resolving]
  - Flushing [Recovering/Resolving]
  - Oxygen saturation abnormal [Recovering/Resolving]
  - Underdose [Unknown]

NARRATIVE: CASE EVENT DATE: 20251203
